FAERS Safety Report 9618305 (Version 2)
Quarter: 2013Q4

REPORT INFORMATION
  Report Type: Spontaneous
  Country: US (occurrence: US)
  Receive Date: 20131014
  Receipt Date: 20131224
  Transmission Date: 20140711
  Serious: No
  Sender: FDA-Public Use
  Company Number: US-BIOGENIDEC-2013BI094932

PATIENT
  Age: 34 Year
  Sex: Male

DRUGS (1)
  1. AVONEX [Suspect]
     Indication: MULTIPLE SCLEROSIS
     Route: 030
     Dates: start: 20130828, end: 20130925

REACTIONS (13)
  - Vision blurred [Recovered/Resolved]
  - Migraine [Recovered/Resolved]
  - Tremor [Recovered/Resolved]
  - Hypoaesthesia [Recovered/Resolved]
  - Hypoaesthesia eye [Recovered/Resolved]
  - Respiratory rate increased [Recovered/Resolved]
  - Adverse event [Recovered/Resolved]
  - Bed rest [Recovered/Resolved]
  - Nausea [Recovered/Resolved]
  - Pain [Recovered/Resolved]
  - Dizziness [Recovered/Resolved]
  - Fatigue [Recovered/Resolved]
  - Pyrexia [Recovered/Resolved]
